FAERS Safety Report 18588034 (Version 3)
Quarter: 2020Q4

REPORT INFORMATION
  Report Type: Report from Study
  Country: FR (occurrence: FR)
  Receive Date: 20201207
  Receipt Date: 20201214
  Transmission Date: 20210114
  Serious: Yes (Death, Hospitalization)
  Sender: FDA-Public Use
  Company Number: FR-EISAI MEDICAL RESEARCH-EC-2020-084825

PATIENT
  Age: 70 Year
  Sex: Male
  Weight: 81 kg

DRUGS (8)
  1. METFORMIN [Concomitant]
     Active Substance: METFORMIN HYDROCHLORIDE
     Dates: start: 2009
  2. INSULIN BASAL [Concomitant]
     Active Substance: INSULIN NOS
     Dates: start: 20181001
  3. ACETAMINOPHEN. [Concomitant]
     Active Substance: ACETAMINOPHEN
     Dates: start: 20201012
  4. LENVATINIB [Suspect]
     Active Substance: LENVATINIB
     Indication: MALIGNANT MELANOMA
     Route: 041
     Dates: start: 20201019, end: 20201123
  5. PEMBROLIZUMAB. [Suspect]
     Active Substance: PEMBROLIZUMAB
     Indication: MALIGNANT MELANOMA
     Route: 041
     Dates: start: 20201019, end: 20201019
  6. MK-1308 [Suspect]
     Active Substance: INVESTIGATIONAL PRODUCT
     Indication: MALIGNANT MELANOMA
     Route: 041
     Dates: start: 20201019, end: 20201019
  7. TOUJEO [Concomitant]
     Active Substance: INSULIN GLARGINE
     Dates: start: 2009
  8. ATENOLOL. [Concomitant]
     Active Substance: ATENOLOL
     Dates: start: 2013

REACTIONS (1)
  - Immune-mediated nephritis [Fatal]

NARRATIVE: CASE EVENT DATE: 20201128
